FAERS Safety Report 5229668-7 (Version None)
Quarter: 2007Q1

REPORT INFORMATION
  Report Type: 
  Country: None (occurrence: None)
  Receive Date: 20070201
  Receipt Date: 20070119
  Transmission Date: 20070707
  Serious: Yes (Hospitalization)
  Sender: FDA-Public Use
  Company Number: CLOF-10435

PATIENT
  Age: 49 Year
  Sex: Female

DRUGS (15)
  1. CLOFARABINE [Suspect]
     Indication: ACUTE MYELOID LEUKAEMIA
     Dosage: 30 MG/M2 QD X 5 IV
     Route: 042
     Dates: start: 20070106, end: 20070110
  2. IDARUBICIN HCL [Suspect]
     Indication: ACUTE MYELOID LEUKAEMIA
     Dosage: 10 MG/M2 QD X 3 IV
     Route: 042
     Dates: start: 20070106, end: 20070108
  3. VALTREX [Concomitant]
  4. PROTONIX [Concomitant]
  5. LEXAPRO [Concomitant]
  6. AMARYL [Concomitant]
  7. LEVAQUIN [Concomitant]
  8. CANDIDAS [Concomitant]
  9. AMBISOME [Concomitant]
  10. MAGNESIUM PROTEIN [Concomitant]
  11. KLOR-CON [Concomitant]
  12. AMILORIDE HYDROCHLORIDE [Concomitant]
  13. COMPAZINE [Concomitant]
  14. ATARAX [Concomitant]
  15. MORPHINE SULFATE [Concomitant]

REACTIONS (4)
  - BONE PAIN [None]
  - HYPERPHOSPHATAEMIA [None]
  - HYPOCALCAEMIA [None]
  - RENAL FAILURE [None]
